FAERS Safety Report 4485058-6 (Version None)
Quarter: 2004Q4

REPORT INFORMATION
  Report Type: 
  Country: None (occurrence: None)
  Receive Date: 20041022
  Receipt Date: 20041022
  Transmission Date: 20050328
  Serious: Yes (Life-Threatening, Hospitalization)
  Sender: FDA-Public Use
  Company Number: None

PATIENT
  Age: 32 Year
  Sex: Male
  Weight: 90.7194 kg

DRUGS (1)
  1. VIOXX [Suspect]
     Dosage: ONE SIX HOURS ORAL
     Route: 048
     Dates: start: 19980806, end: 19990408

REACTIONS (1)
  - THROMBOSIS [None]
